FAERS Safety Report 5273148-X (Version None)
Quarter: 2007Q1

REPORT INFORMATION
  Report Type: 
  Country: None (occurrence: None)
  Receive Date: 20070322
  Receipt Date: 20070312
  Transmission Date: 20070707
  Serious: Yes (Hospitalization)
  Sender: FDA-Public Use
  Company Number: FR-PFIZER INC-2007019464

PATIENT
  Sex: Female
  Weight: 2.8 kg

DRUGS (6)
  1. XANAX [Suspect]
     Route: 048
  2. SERESTA [Suspect]
     Route: 048
  3. SUBUTEX [Suspect]
     Route: 048
  4. MEPRONIZINE [Suspect]
     Dosage: TEXT:UNIT DOSE=1DF  TDD= 2 DF
     Route: 048
  5. ROHYPNOL [Concomitant]
     Route: 048
  6. ALL OTHER THERAPEUTIC PRODUCTS [Concomitant]

REACTIONS (4)
  - DRUG EXPOSURE DURING PREGNANCY [None]
  - DRUG WITHDRAWAL SYNDROME NEONATAL [None]
  - HYPERTONIA [None]
  - TREMOR NEONATAL [None]
